FAERS Safety Report 20073786 (Version 1)
Quarter: 2021Q4

REPORT INFORMATION
  Report Type: Spontaneous
  Country: US (occurrence: None)
  Receive Date: 20211112
  Receipt Date: 20211112
  Transmission Date: 20220303
  Serious: No
  Sender: FDA-Public Use
  Company Number: None

PATIENT
  Sex: Female

DRUGS (1)
  1. HUMIRA [Suspect]
     Active Substance: ADALIMUMAB
     Indication: Rheumatoid arthritis
     Dosage: OTHER QUANTITY : 40MG/0.4ML;?OTHER FREQUENCY : 1 PEN EVERY 14 DAY;?OTHER ROUTE : INJECTION;?
     Route: 050
     Dates: start: 20180309

REACTIONS (5)
  - Joint swelling [None]
  - Arthralgia [None]
  - Arthralgia [None]
  - Peripheral swelling [None]
  - Therapeutic product effect decreased [None]
